FAERS Safety Report 24535672 (Version 1)
Quarter: 2024Q4

REPORT INFORMATION
  Report Type: Spontaneous
  Country: US (occurrence: None)
  Receive Date: 20241022
  Receipt Date: 20241022
  Transmission Date: 20250114
  Serious: No
  Sender: Public
  Company Number: None

PATIENT
  Age: 59 Year
  Sex: Male
  Weight: 107.1 kg

DRUGS (1)
  1. REZDIFFRA [Suspect]
     Active Substance: RESMETIROM
     Indication: Steatohepatitis
     Dosage: FREQUENCY : DAILY;?
     Route: 048
     Dates: start: 20240923, end: 20240930

REACTIONS (2)
  - Headache [None]
  - Therapy cessation [None]

NARRATIVE: CASE EVENT DATE: 20240926
